FAERS Safety Report 5948484-1 (Version None)
Quarter: 2008Q4

REPORT INFORMATION
  Report Type: 
  Country: None (occurrence: None)
  Receive Date: 20081111
  Receipt Date: 20081107
  Transmission Date: 20090506
  Serious: Yes (Other)
  Sender: FDA-Public Use
  Company Number: A0755415A

PATIENT
  Age: 54 Year
  Sex: Female

DRUGS (5)
  1. IMITREX [Suspect]
     Indication: MIGRAINE
     Dosage: 100MG AS REQUIRED
     Route: 048
     Dates: start: 19900101
  2. RANITIDINE [Concomitant]
  3. DIAZEPAM [Concomitant]
  4. LISINOPRIL [Concomitant]
  5. CITALOPRAM HYDROBROMIDE [Concomitant]

REACTIONS (7)
  - ABNORMAL DREAMS [None]
  - COORDINATION ABNORMAL [None]
  - GAIT DISTURBANCE [None]
  - HYPERSOMNIA [None]
  - IMPAIRED DRIVING ABILITY [None]
  - SLEEP DISORDER [None]
  - VISUAL IMPAIRMENT [None]
